FAERS Safety Report 6517512-7 (Version None)
Quarter: 2009Q4

REPORT INFORMATION
  Report Type: 
  Country: None (occurrence: None)
  Receive Date: 20091224
  Receipt Date: 20091216
  Transmission Date: 20100525
  Serious: Yes (Other)
  Sender: FDA-Public Use
  Company Number: GXKR2009FR13527

PATIENT
  Age: 66 Year
  Sex: Male
  Weight: 82 kg

DRUGS (6)
  1. OXALIPLATIN [Suspect]
     Indication: COLON CANCER STAGE III
     Dosage: 85 MG/M2, FOR 2 HOURS
  2. OXALIPLATIN [Suspect]
     Dosage: 75 MG/M2, UNK
  3. FLUOROURACIL [Suspect]
     Indication: COLON CANCER STAGE III
     Route: 065
  4. IRINOTECAN (NGX) [Suspect]
     Indication: COLON CANCER STAGE III
     Dosage: 180 MG/M2, UNK
     Route: 065
  5. CETUXIMAB [Suspect]
     Indication: COLON CANCER STAGE III
     Dosage: 250 MG/M2, UNK
     Route: 065
  6. LEUCOVORIN CALCIUM [Concomitant]
     Indication: COLON CANCER STAGE III
     Route: 065

REACTIONS (4)
  - DIARRHOEA [None]
  - NEUROPATHY PERIPHERAL [None]
  - NEUTROPENIA [None]
  - SKIN TOXICITY [None]
